FAERS Safety Report 4704842-4 (Version None)
Quarter: 2005Q2

REPORT INFORMATION
  Report Type: 
  Country: None (occurrence: None)
  Receive Date: 20050629
  Receipt Date: 20030409
  Transmission Date: 20051028
  Serious: No
  Sender: FDA-Public Use
  Company Number: 5189

PATIENT
  Age: 31 Year
  Sex: Female

DRUGS (1)
  1. BLEOMYCIN [Suspect]
     Indication: SKIN PAPILLOMA
     Dosage: 14 UNITS TOTAL IL
     Route: 027

REACTIONS (4)
  - ERYTHEMA [None]
  - PRURITUS GENERALISED [None]
  - SKIN HYPERPIGMENTATION [None]
  - URTICARIA [None]
